FAERS Safety Report 4292693-7 (Version None)
Quarter: 2004Q1

REPORT INFORMATION
  Report Type: 
  Country: None (occurrence: None)
  Receive Date: 20040126
  Receipt Date: 20031013
  Transmission Date: 20041129
  Serious: No
  Sender: FDA-Public Use
  Company Number: USA031049706

PATIENT
  Age: 53 Year
  Sex: Female

DRUGS (1)
  1. FORTEO [Suspect]
     Dates: start: 20030922

REACTIONS (4)
  - DIZZINESS [None]
  - HYPOTENSION [None]
  - POLLAKIURIA [None]
  - THIRST [None]
